FAERS Safety Report 6433789-0 (Version None)
Quarter: 2009Q4

REPORT INFORMATION
  Report Type: 
  Country: None (occurrence: None)
  Receive Date: 20091110
  Receipt Date: 20090820
  Transmission Date: 20100525
  Serious: No
  Sender: FDA-Public Use
  Company Number: A0803291A

PATIENT
  Age: 66 Year
  Sex: Female

DRUGS (2)
  1. ALTABAX [Suspect]
     Indication: INFECTION
     Dosage: 1APP TWICE PER DAY
     Route: 061
     Dates: start: 20090804, end: 20090804
  2. NO CONCURRENT MEDICATION [Concomitant]

REACTIONS (2)
  - APPLICATION SITE PAIN [None]
  - MUSCLE SPASMS [None]
